FAERS Safety Report 11062389 (Version 2)
Quarter: 2015Q3

REPORT INFORMATION
  Report Type: Spontaneous
  Country: US (occurrence: US)
  Receive Date: 20150424
  Receipt Date: 20150723
  Transmission Date: 20151125
  Serious: Yes (Life-Threatening, Hospitalization)
  Sender: FDA-Public Use
  Company Number: US-ALKERMES INC.-ALK-2015-004347

PATIENT

DRUGS (9)
  1. VIVITROL [Suspect]
     Active Substance: NALTREXONE
     Indication: DRUG DEPENDENCE
  2. INDERAL [Concomitant]
     Active Substance: PROPRANOLOL HYDROCHLORIDE
     Indication: PRODUCT USED FOR UNKNOWN INDICATION
     Dosage: 10 MG, 3X PRN
  3. ABILIFY [Suspect]
     Active Substance: ARIPIPRAZOLE
     Indication: PRODUCT USED FOR UNKNOWN INDICATION
     Dosage: 2 MG, 1-2 TABLETS DAILY
  4. ADDERALL [Concomitant]
     Active Substance: AMPHETAMINE ASPARTATE\AMPHETAMINE SULFATE\DEXTROAMPHETAMINE SACCHARATE\DEXTROAMPHETAMINE SULFATE
     Indication: PRODUCT USED FOR UNKNOWN INDICATION
     Dosage: UNK
  5. FLEXERIL [Concomitant]
     Active Substance: CYCLOBENZAPRINE HYDROCHLORIDE
     Indication: PRODUCT USED FOR UNKNOWN INDICATION
     Dosage: 10 MG, TID PRN
  6. KLONOPIN [Concomitant]
     Active Substance: CLONAZEPAM
     Indication: PRODUCT USED FOR UNKNOWN INDICATION
     Dosage: 0.5 MG, TID PRN
  7. VIVITROL [Suspect]
     Active Substance: NALTREXONE
     Indication: ALCOHOLISM
     Dosage: 380 MG, QMO
     Route: 030
     Dates: start: 20150226, end: 20150226
  8. SUBOXONE [Concomitant]
     Active Substance: BUPRENORPHINE HYDROCHLORIDE\NALOXONE HYDROCHLORIDE
     Indication: DRUG DEPENDENCE
     Dosage: UNK
     Dates: end: 20150216
  9. ZOFRAN [Concomitant]
     Active Substance: ONDANSETRON HYDROCHLORIDE
     Indication: PRODUCT USED FOR UNKNOWN INDICATION
     Dosage: 4 MG, PRN

REACTIONS (33)
  - Altered state of consciousness [Unknown]
  - Injection site erythema [Unknown]
  - Dyskinesia [None]
  - Psychotic disorder [Recovered/Resolved]
  - Head injury [Recovered/Resolved]
  - Limb discomfort [Unknown]
  - Vitreous floaters [Recovered/Resolved]
  - Memory impairment [Recovered/Resolved]
  - Pain [Recovered/Resolved]
  - Injection site reaction [Unknown]
  - Depression [Unknown]
  - Vomiting [Recovered/Resolved]
  - Paranoia [None]
  - Injection site bruising [Unknown]
  - Muscle spasms [Unknown]
  - Suicidal ideation [Recovered/Resolved]
  - Psychogenic seizure [Recovered/Resolved]
  - Dizziness [Recovered/Resolved]
  - Migraine [Recovered/Resolved]
  - Hearing impaired [Unknown]
  - Injection site mass [Unknown]
  - Delusion [None]
  - Tunnel vision [Unknown]
  - Loss of consciousness [Unknown]
  - Headache [Unknown]
  - Nausea [Recovered/Resolved]
  - Feeling abnormal [Unknown]
  - Oedema [Unknown]
  - Bradyphrenia [Unknown]
  - Injection site pain [Unknown]
  - Drug withdrawal syndrome [Recovered/Resolved]
  - Seizure [Unknown]
  - Insomnia [Recovered/Resolved]

NARRATIVE: CASE EVENT DATE: 20150312
